FAERS Safety Report 25319492 (Version 1)
Quarter: 2025Q2

REPORT INFORMATION
  Report Type: Report from Study
  Country: RO (occurrence: RO)
  Receive Date: 20250515
  Receipt Date: 20250515
  Transmission Date: 20250717
  Serious: Yes (Other)
  Sender: ROCHE
  Company Number: RO-ROCHE-10000272778

PATIENT

DRUGS (4)
  1. ATEZOLIZUMAB [Suspect]
     Active Substance: ATEZOLIZUMAB
     Indication: Non-small cell lung cancer
     Route: 065
  2. PEMBROLIZUMAB [Suspect]
     Active Substance: PEMBROLIZUMAB
     Indication: Non-small cell lung cancer
     Route: 065
  3. NIVOLUMAB [Suspect]
     Active Substance: NIVOLUMAB
     Indication: Non-small cell lung cancer
     Route: 065
  4. IPILIMUMAB [Suspect]
     Active Substance: IPILIMUMAB
     Indication: Non-small cell lung cancer
     Route: 065

REACTIONS (13)
  - Thyroiditis [Unknown]
  - Hypothyroidism [Unknown]
  - Hyperthyroidism [Unknown]
  - Hypophysitis [Unknown]
  - Primary adrenal insufficiency [Unknown]
  - Diabetes mellitus [Unknown]
  - Hepatitis [Unknown]
  - Colitis [Unknown]
  - Myocarditis [Unknown]
  - Myositis [Unknown]
  - Nephritis [Unknown]
  - Dermatosis [Unknown]
  - Anaemia [Unknown]
